FAERS Safety Report 5927786-9 (Version None)
Quarter: 2008Q4

REPORT INFORMATION
  Report Type: 
  Country: None (occurrence: None)
  Receive Date: 20081023
  Receipt Date: 20081013
  Transmission Date: 20090506
  Serious: Yes (Hospitalization, Other)
  Sender: FDA-Public Use
  Company Number: US-AMGEN-QUU313348

PATIENT
  Sex: Female

DRUGS (2)
  1. ENBREL [Suspect]
     Indication: PSORIATIC ARTHROPATHY
     Route: 058
     Dates: start: 20060902
  2. UNSPECIFIED STEROIDS [Concomitant]

REACTIONS (7)
  - ALOPECIA [None]
  - ASTHMA [None]
  - BRONCHOPULMONARY ASPERGILLOSIS [None]
  - DIABETES MELLITUS [None]
  - INJECTION SITE IRRITATION [None]
  - NEUROPATHY PERIPHERAL [None]
  - PULMONARY MASS [None]
